FAERS Safety Report 12610834 (Version 4)
Quarter: 2017Q2

REPORT INFORMATION
  Report Type: Spontaneous
  Country: US (occurrence: US)
  Receive Date: 20160801
  Receipt Date: 20170615
  Transmission Date: 20170830
  Serious: No
  Sender: FDA-Public Use
  Company Number: US-PFIZER INC-2016327086

PATIENT
  Age: 66 Year
  Sex: Female
  Weight: 39.91 kg

DRUGS (4)
  1. IBRANCE [Suspect]
     Active Substance: PALBOCICLIB
     Dosage: 125 MG, CYCLIC (D1-21 Q28 DAYS)
     Route: 048
     Dates: start: 20160515
  2. IBRANCE [Suspect]
     Active Substance: PALBOCICLIB
     Indication: BREAST CANCER METASTATIC
     Dosage: 125 MG, CYCLIC (1 DAILY FOR 21 DAYS, THEN 7 OFF)
     Route: 048
     Dates: start: 20160512
  3. IBRANCE [Suspect]
     Active Substance: PALBOCICLIB
     Dosage: 125 MG, CYCLIC, (DAY 1-21 EVERY 28 DAYS )
     Route: 048
     Dates: start: 20160515
  4. IBRANCE [Suspect]
     Active Substance: PALBOCICLIB
     Dosage: 125 MG, CYCLIC (DAYS 1-21EVERY 28DAYS)
     Route: 048
     Dates: start: 20160515

REACTIONS (3)
  - Pain in extremity [Recovering/Resolving]
  - Alopecia [Unknown]
  - Neoplasm progression [Unknown]
